FAERS Safety Report 4367476-X (Version None)
Quarter: 2004Q2

REPORT INFORMATION
  Report Type: 
  Country: None (occurrence: None)
  Receive Date: 20040520
  Receipt Date: 20040505
  Transmission Date: 20050107
  Serious: Yes (Hospitalization)
  Sender: FDA-Public Use
  Company Number: ZLBIGIV/04/14/USA

PATIENT
  Age: 58 Month
  Sex: Male

DRUGS (3)
  1. CARIMUNE NF (IMMUNOGLOBULIN HUMAN NORMAL) (SOLUTION) [Suspect]
     Indication: KAWASAKI'S DISEASE
     Dosage: 2 G/KG B.W, ONCE, I.V.
     Route: 042
     Dates: start: 20040406, end: 20040406
  2. GAMMABARD (IMMUNOGLOBULIN HUMAN NORMAL) (SOLUTION) [Concomitant]
  3. ASPIRIN [Concomitant]

REACTIONS (2)
  - PYREXIA [None]
  - THERAPY NON-RESPONDER [None]
